FAERS Safety Report 18044149 (Version 1)
Quarter: 2020Q3

REPORT INFORMATION
  Report Type: Other
  Country: US (occurrence: US)
  Receive Date: 20200720
  Receipt Date: 20200720
  Transmission Date: 20201103
  Serious: Yes (Hospitalization)
  Sender: FDA-Public Use
  Company Number: US-ROCHE-2631957

PATIENT
  Age: 60 Year
  Sex: Female
  Weight: 56.3 kg

DRUGS (7)
  1. GABAPENTIN. [Concomitant]
     Active Substance: GABAPENTIN
     Indication: NEURALGIA
  2. DULOXETINE. [Concomitant]
     Active Substance: DULOXETINE
     Indication: NEURALGIA
     Dosage: ONGOING: YES
     Dates: start: 20200131
  3. BACLOFEN. [Concomitant]
     Active Substance: BACLOFEN
  4. RITUXAN [Suspect]
     Active Substance: RITUXIMAB
     Indication: DEMYELINATION
     Dosage: ONGOING: YES, 6 MONTHS
     Route: 042
     Dates: start: 20190131
  5. CELECOXIB. [Concomitant]
     Active Substance: CELECOXIB
     Indication: NEURALGIA
     Dosage: ONGOING: YES
     Dates: start: 20200131
  6. RITUXAN [Suspect]
     Active Substance: RITUXIMAB
     Indication: DEMYELINATION
  7. RITUXAN [Suspect]
     Active Substance: RITUXIMAB
     Indication: MULTIPLE SCLEROSIS

REACTIONS (4)
  - Neuralgia [Not Recovered/Not Resolved]
  - Off label use [Unknown]
  - Intentional product use issue [Unknown]
  - Oxygen saturation decreased [Recovered/Resolved]

NARRATIVE: CASE EVENT DATE: 201911
